FAERS Safety Report 21471414 (Version 3)
Quarter: 2023Q2

REPORT INFORMATION
  Report Type: Spontaneous
  Country: US (occurrence: US)
  Receive Date: 20221018
  Receipt Date: 20230426
  Transmission Date: 20230721
  Serious: Yes (Life-Threatening, Hospitalization, Other)
  Sender: FDA-Public Use
  Company Number: US-PFIZER INC-PV202200078000

PATIENT
  Age: 58 Year
  Sex: Female

DRUGS (4)
  1. CEFEPIME HYDROCHLORIDE [Suspect]
     Active Substance: CEFEPIME HYDROCHLORIDE
     Indication: Sepsis
     Dosage: UNK
  2. VANCOMYCIN HYDROCHLORIDE [Suspect]
     Active Substance: VANCOMYCIN HYDROCHLORIDE
     Indication: Sepsis
     Dosage: UNK
  3. OXCARBAZEPINE [Suspect]
     Active Substance: OXCARBAZEPINE
     Dosage: UNK
  4. ALLOPURINOL [Suspect]
     Active Substance: ALLOPURINOL
     Dosage: UNK

REACTIONS (1)
  - Drug reaction with eosinophilia and systemic symptoms [Unknown]
